FAERS Safety Report 18364420 (Version 1)
Quarter: 2020Q4

REPORT INFORMATION
  Report Type: Spontaneous
  Country: US (occurrence: US)
  Receive Date: 20201008
  Receipt Date: 20201008
  Transmission Date: 20210114
  Serious: No
  Sender: FDA-Public Use
  Company Number: None

PATIENT
  Age: 49 Year
  Sex: Female
  Weight: 76.5 kg

DRUGS (4)
  1. ROPINEROLE [Concomitant]
     Active Substance: ROPINIROLE
  2. VALIUM [Concomitant]
     Active Substance: DIAZEPAM
  3. CYMBALTA [Suspect]
     Active Substance: DULOXETINE HYDROCHLORIDE
     Indication: MUSCULAR DYSTROPHY
     Dosage: ?          QUANTITY:3 CAPSULE(S);?
     Route: 048
     Dates: start: 20200323, end: 20201006
  4. TYLENOL [Concomitant]
     Active Substance: ACETAMINOPHEN

REACTIONS (6)
  - Vomiting [None]
  - Therapeutic product effect decreased [None]
  - Dizziness [None]
  - Nausea [None]
  - Withdrawal syndrome [None]
  - Palpitations [None]

NARRATIVE: CASE EVENT DATE: 20201007
